FAERS Safety Report 9592697 (Version 1)
Quarter: 2013Q4

REPORT INFORMATION
  Report Type: Spontaneous
  Country: BR (occurrence: BR)
  Receive Date: 20131004
  Receipt Date: 20131004
  Transmission Date: 20140711
  Serious: Yes (Hospitalization, Other)
  Sender: FDA-Public Use
  Company Number: BR-SA-2013SA095504

PATIENT
  Age: 29 Year
  Sex: Female
  Weight: 62 kg

DRUGS (6)
  1. LANTUS [Suspect]
     Indication: TYPE 1 DIABETES MELLITUS
     Route: 065
     Dates: start: 2004
  2. DEVICE NOS [Concomitant]
     Indication: DEVICE THERAPY
     Dates: start: 2004, end: 20130913
  3. DEVICE NOS [Concomitant]
     Indication: DEVICE THERAPY
     Dates: start: 201309
  4. LASIX [Concomitant]
     Indication: RENAL DISORDER
     Route: 048
     Dates: start: 20130923
  5. ENALAPRIL MALEATE [Concomitant]
     Indication: BLOOD PRESSURE
     Route: 048
     Dates: start: 20130923
  6. HUMULIN [Concomitant]
     Indication: TYPE 1 DIABETES MELLITUS
     Dosage: UNSPECIFIED IU EACH MEAL
     Dates: start: 1995

REACTIONS (17)
  - Pancreatitis [Recovering/Resolving]
  - Hyperlipidaemia [Recovering/Resolving]
  - Hypoglycaemia [Recovering/Resolving]
  - Blood albumin decreased [Recovering/Resolving]
  - Blood creatinine decreased [Recovering/Resolving]
  - Pancreatic disorder [Recovering/Resolving]
  - Gamma-glutamyltransferase increased [Recovering/Resolving]
  - Liver disorder [Recovering/Resolving]
  - Blood triglycerides increased [Recovering/Resolving]
  - Renal disorder [Recovering/Resolving]
  - Protein urine absent [Recovering/Resolving]
  - Coma [Recovering/Resolving]
  - Thrombosis [Recovering/Resolving]
  - Local swelling [Recovering/Resolving]
  - Fatigue [Recovering/Resolving]
  - Hepatic neoplasm [Not Recovered/Not Resolved]
  - Pancreatic neoplasm [Not Recovered/Not Resolved]
